FAERS Safety Report 6365974-0 (Version None)
Quarter: 2009Q3

REPORT INFORMATION
  Report Type: 
  Country: None (occurrence: None)
  Receive Date: 20090919
  Receipt Date: 20090826
  Transmission Date: 20100115
  Serious: No
  Sender: FDA-Public Use
  Company Number: US-ABBOTT-09P-163-0594011-00

PATIENT
  Sex: Female

DRUGS (1)
  1. HUMIRA [Suspect]
     Indication: PSORIATIC ARTHROPATHY

REACTIONS (4)
  - DRY EYE [None]
  - INJECTION SITE PAIN [None]
  - NASAL DISORDER [None]
  - RESPIRATORY DISORDER [None]
